FAERS Safety Report 22077231 (Version 5)
Quarter: 2023Q2

REPORT INFORMATION
  Report Type: Spontaneous
  Country: US (occurrence: US)
  Receive Date: 20230309
  Receipt Date: 20230421
  Transmission Date: 20230721
  Serious: No
  Sender: FDA-Public Use
  Company Number: US-GSKCCFUS-Case-01647900_AE-93020

PATIENT
  Sex: Female

DRUGS (10)
  1. VENTOLIN HFA [Suspect]
     Active Substance: ALBUTEROL SULFATE
     Indication: Product used for unknown indication
     Dosage: UNK
     Route: 055
  2. VENTOLIN HFA [Suspect]
     Active Substance: ALBUTEROL SULFATE
     Indication: Product used for unknown indication
     Dosage: UNK
  3. VENTOLIN HFA [Suspect]
     Active Substance: ALBUTEROL SULFATE
  4. VENTOLIN HFA [Suspect]
     Active Substance: ALBUTEROL SULFATE
     Indication: Product used for unknown indication
     Dosage: UNK
  5. VENTOLIN HFA [Suspect]
     Active Substance: ALBUTEROL SULFATE
  6. VENTOLIN HFA [Suspect]
     Active Substance: ALBUTEROL SULFATE
  7. VENTOLIN HFA [Suspect]
     Active Substance: ALBUTEROL SULFATE
     Indication: Product used for unknown indication
     Dosage: UNK
  8. VENTOLIN HFA [Suspect]
     Active Substance: ALBUTEROL SULFATE
  9. VENTOLIN HFA [Suspect]
     Active Substance: ALBUTEROL SULFATE
  10. VENTOLIN HFA [Suspect]
     Active Substance: ALBUTEROL SULFATE

REACTIONS (8)
  - Asthma [Unknown]
  - Sneezing [Unknown]
  - Increased upper airway secretion [Unknown]
  - Cough [Unknown]
  - Ill-defined disorder [Unknown]
  - Expired device used [Unknown]
  - Drug ineffective [Unknown]
  - Product complaint [Unknown]
